APPROVED DRUG PRODUCT: FIDAXOMICIN
Active Ingredient: FIDAXOMICIN
Strength: 200MG
Dosage Form/Route: TABLET;ORAL
Application: A219559 | Product #001 | TE Code: AB
Applicant: APOTEX INC
Approved: Feb 2, 2026 | RLD: No | RS: No | Type: RX